FAERS Safety Report 7534061-8 (Version None)
Quarter: 2011Q2

REPORT INFORMATION
  Report Type: 
  Country: None (occurrence: None)
  Receive Date: 20110608
  Receipt Date: 20061003
  Transmission Date: 20111010
  Serious: Yes (Other)
  Sender: FDA-Public Use
  Company Number: PHMT2006CA01915

PATIENT
  Sex: Female

DRUGS (2)
  1. OMEPRAZOLE [Concomitant]
  2. SANDOSTATIN LAR [Suspect]
     Indication: VIPOMA
     Dosage: 20 MG, QMO
     Dates: start: 20050407

REACTIONS (1)
  - URINARY TRACT INFECTION [None]
